FAERS Safety Report 17024264 (Version 1)
Quarter: 2019Q4

REPORT INFORMATION
  Report Type: Spontaneous
  Country: US (occurrence: US)
  Receive Date: 20191113
  Receipt Date: 20191113
  Transmission Date: 20200122
  Serious: No
  Sender: FDA-Public Use
  Company Number: NVSC2019US018867

PATIENT
  Sex: Female

DRUGS (13)
  1. PROCHLORPERAZINE. [Suspect]
     Active Substance: PROCHLORPERAZINE
     Indication: CYCLIC VOMITING SYNDROME
     Dosage: UNK UKN
     Route: 065
  2. DIAZEPAM. [Suspect]
     Active Substance: DIAZEPAM
     Indication: CYCLIC VOMITING SYNDROME
     Dosage: UNK UKN
     Route: 065
  3. SCOPOLAMINE [Suspect]
     Active Substance: SCOPOLAMINE
     Indication: CYCLIC VOMITING SYNDROME
     Dosage: UNK UKN
     Route: 065
  4. CYPROHEPTADINE. [Suspect]
     Active Substance: CYPROHEPTADINE
     Indication: CYCLIC VOMITING SYNDROME
     Dosage: UNK UKN
     Route: 065
  5. DULOXETINE. [Suspect]
     Active Substance: DULOXETINE
     Indication: CYCLIC VOMITING SYNDROME
     Dosage: UNK UKN
     Route: 065
  6. TOPIRAMATE. [Suspect]
     Active Substance: TOPIRAMATE
     Indication: CYCLIC VOMITING SYNDROME
     Dosage: UNK UKN
     Route: 065
  7. DIPHENHYDRAMINE. [Suspect]
     Active Substance: DIPHENHYDRAMINE
     Indication: CYCLIC VOMITING SYNDROME
     Dosage: UNK UKN
     Route: 065
  8. LORAZEPAM. [Suspect]
     Active Substance: LORAZEPAM
     Indication: CYCLIC VOMITING SYNDROME
     Dosage: 1.5 MG
     Route: 065
  9. LANSOPRAZOLE. [Suspect]
     Active Substance: LANSOPRAZOLE
     Indication: CYCLIC VOMITING SYNDROME
     Dosage: UNK UKN
     Route: 065
  10. MIRTAZAPINE. [Suspect]
     Active Substance: MIRTAZAPINE
     Indication: CYCLIC VOMITING SYNDROME
     Dosage: UNK UKN
     Route: 065
  11. ONDANSETRON [Suspect]
     Active Substance: ONDANSETRON
     Indication: CYCLIC VOMITING SYNDROME
     Dosage: UNK UKN
     Route: 065
  12. AMITRIPTYLINE [Suspect]
     Active Substance: AMITRIPTYLINE
     Indication: CYCLIC VOMITING SYNDROME
     Dosage: UNK UKN
     Route: 065
  13. PROMETHAZINE [Suspect]
     Active Substance: PROMETHAZINE HYDROCHLORIDE
     Indication: CYCLIC VOMITING SYNDROME
     Dosage: UNK UKN
     Route: 065

REACTIONS (2)
  - Drug ineffective [Unknown]
  - Product use in unapproved indication [Unknown]
